FAERS Safety Report 12717741 (Version 1)
Quarter: 2016Q3

REPORT INFORMATION
  Report Type: Spontaneous
  Country: US (occurrence: US)
  Receive Date: 20160906
  Receipt Date: 20160906
  Transmission Date: 20161109
  Serious: Yes (Other)
  Sender: FDA-Public Use
  Company Number: US-EMERGENT BIOSOLUTIONS-16BA00077SP

PATIENT
  Age: 34 Year
  Sex: Male
  Weight: 83.9 kg

DRUGS (6)
  1. ENOXAPARIN SODIUM. [Concomitant]
     Active Substance: ENOXAPARIN SODIUM
     Indication: ANTICOAGULANT THERAPY
     Dosage: 40 MG, QD
     Route: 058
     Dates: start: 20160610, end: 20160621
  2. VANCOMYCIN [Concomitant]
     Active Substance: VANCOMYCIN
     Dosage: 1250 UNK, Q8H
     Route: 042
     Dates: start: 20160623, end: 20160718
  3. BAT [Suspect]
     Active Substance: EQUINE BOTULINUM NEUROTOXIN A/B/C/D/E/F/G IMMUNE FAB2
     Indication: BOTULISM
     Dosage: 180 ML, SINGLE
     Dates: start: 20160610, end: 20160611
  4. PIPERACILLIN TAZOBACTAM TEVA [Concomitant]
     Indication: ANTIBIOTIC THERAPY
     Dosage: 3.375 G, Q6H
     Route: 042
     Dates: start: 20160610, end: 20160617
  5. ENOXAPARIN SODIUM. [Concomitant]
     Active Substance: ENOXAPARIN SODIUM
     Dosage: 10 MG/ML, UNK
     Route: 058
     Dates: start: 20160609, end: 20160621
  6. FAMOTIDINE ACID REDUCER [Concomitant]
     Indication: GASTRIC PH DECREASED
     Dosage: 20 MG, UNK
     Route: 042
     Dates: start: 20160609, end: 20160621

REACTIONS (1)
  - Pneumonia aspiration [Recovered/Resolved]

NARRATIVE: CASE EVENT DATE: 20160707
